FAERS Safety Report 20760598 (Version 1)
Quarter: 2022Q2

REPORT INFORMATION
  Report Type: Spontaneous
  Country: US (occurrence: US)
  Receive Date: 20220428
  Receipt Date: 20220428
  Transmission Date: 20220721
  Serious: No
  Sender: FDA-Public Use
  Company Number: US-GSKCCFUS-Case-01353547_AE-78422

PATIENT
  Age: 43 Year
  Sex: Female

DRUGS (2)
  1. BENLYSTA [Suspect]
     Active Substance: BELIMUMAB
     Indication: Product used for unknown indication
     Dosage: 612 MG
  2. BENLYSTA [Suspect]
     Active Substance: BELIMUMAB
     Dosage: 520 MG

REACTIONS (2)
  - Inappropriate schedule of product administration [Unknown]
  - Product prescribing issue [Unknown]
